FAERS Safety Report 6554718-5 (Version None)
Quarter: 2010Q1

REPORT INFORMATION
  Report Type: 
  Country: None (occurrence: None)
  Receive Date: 20100127
  Receipt Date: 20091207
  Transmission Date: 20100710
  Serious: Yes (Hospitalization)
  Sender: FDA-Public Use
  Company Number: FR-SANOFI-AVENTIS-2009SA011294

PATIENT
  Age: 57 Year

DRUGS (8)
  1. OXALIPLATIN [Suspect]
     Indication: COLON CANCER
     Route: 041
     Dates: start: 20060620, end: 20060620
  2. OXALIPLATIN [Suspect]
     Route: 041
     Dates: start: 20060926, end: 20060926
  3. CETUXIMAB [Suspect]
     Indication: COLON CANCER
     Route: 042
     Dates: start: 20060620, end: 20060620
  4. CETUXIMAB [Suspect]
     Route: 042
     Dates: start: 20061003, end: 20061003
  5. FLUOROURACIL [Suspect]
     Indication: COLON CANCER
     Route: 042
     Dates: start: 20060620, end: 20060620
  6. FLUOROURACIL [Suspect]
     Route: 042
     Dates: start: 20060926, end: 20060926
  7. FOLINIC ACID [Suspect]
     Indication: COLON CANCER
     Route: 042
     Dates: start: 20060620, end: 20060620
  8. FOLINIC ACID [Suspect]
     Route: 042
     Dates: start: 20060926, end: 20060926

REACTIONS (1)
  - MYOCARDIAL INFARCTION [None]
